FAERS Safety Report 10141046 (Version 1)
Quarter: 2014Q2

REPORT INFORMATION
  Report Type: Spontaneous
  Country: US (occurrence: US)
  Receive Date: 20140429
  Receipt Date: 20140429
  Transmission Date: 20141212
  Serious: Yes (Hospitalization)
  Sender: FDA-Public Use
  Company Number: US-JNJFOC-20140413813

PATIENT
  Sex: Male

DRUGS (11)
  1. ZYTIGA [Suspect]
     Indication: PROSTATE CANCER
     Dosage: STRENGTH: 250 MG
     Route: 048
     Dates: start: 20130710
  2. PLAVIX [Concomitant]
     Route: 065
  3. ASPIRIN [Concomitant]
     Route: 065
  4. PROTONIX [Concomitant]
     Route: 065
  5. ATENOLOL [Concomitant]
     Route: 065
  6. FLUOXETINE [Concomitant]
     Route: 065
  7. ISOSORBIDE [Concomitant]
     Route: 065
  8. LIPITOR [Concomitant]
     Route: 065
  9. LUPRON [Concomitant]
     Route: 065
  10. MAXZIDE [Concomitant]
     Route: 065
  11. PREDNISONE [Concomitant]
     Route: 065

REACTIONS (2)
  - Pneumonia [Unknown]
  - Ulcer haemorrhage [Unknown]
